FAERS Safety Report 14150366 (Version 1)
Quarter: 2017Q4

REPORT INFORMATION
  Report Type: Spontaneous
  Country: CA (occurrence: CA)
  Receive Date: 20171101
  Receipt Date: 20171101
  Transmission Date: 20180321
  Serious: Yes (Other)
  Sender: FDA-Public Use
  Company Number: CA-TERSERA THERAPEUTICS, LLC-2032986

PATIENT
  Age: 25 Year
  Sex: Female

DRUGS (9)
  1. TRASTUZUMAB. [Concomitant]
     Active Substance: TRASTUZUMAB
     Dates: start: 201410, end: 201502
  2. EXEMESTANE. [Concomitant]
     Active Substance: EXEMESTANE
     Dates: start: 201504
  3. CAPECITABINE. [Concomitant]
     Active Substance: CAPECITABINE
     Dates: start: 201605
  4. LAPATINIB [Concomitant]
     Active Substance: LAPATINIB
     Dates: start: 201605
  5. DOCETAXEL. [Concomitant]
     Active Substance: DOCETAXEL
     Dates: start: 200706, end: 201502
  6. PERTUZUMAB. [Concomitant]
     Active Substance: PERTUZUMAB
     Dates: start: 201410, end: 201502
  7. ZOLADEX [Suspect]
     Active Substance: GOSERELIN ACETATE
     Indication: PRODUCT USED FOR UNKNOWN INDICATION
     Route: 058
     Dates: start: 200712
  8. TAMOXIFEN CITRATE. [Suspect]
     Active Substance: TAMOXIFEN CITRATE
     Route: 048
     Dates: start: 200411
  9. LETROZOLE. [Concomitant]
     Active Substance: LETROZOLE
     Dates: start: 200712

REACTIONS (6)
  - Pulmonary mass [Unknown]
  - Invasive ductal breast carcinoma [Unknown]
  - Metastases to liver [Unknown]
  - Malignant neoplasm progression [Unknown]
  - Lymphadenopathy [Unknown]
  - Cardiomyopathy [Unknown]

NARRATIVE: CASE EVENT DATE: 201409
